FAERS Safety Report 5076737-0 (Version None)
Quarter: 2006Q3

REPORT INFORMATION
  Report Type: 
  Country: None (occurrence: None)
  Receive Date: 20060810
  Receipt Date: 20060803
  Transmission Date: 20061208
  Serious: Yes (Hospitalization)
  Sender: FDA-Public Use
  Company Number: FR-AVENTIS-200612721FR

PATIENT
  Age: 96 Year
  Sex: Female
  Weight: 37 kg

DRUGS (5)
  1. DAONIL FAIBLE 1.25 MG [Suspect]
     Indication: DIABETES MELLITUS
     Route: 048
     Dates: end: 20060619
  2. TAREG [Concomitant]
     Indication: ESSENTIAL HYPERTENSION
     Route: 048
     Dates: end: 20060619
  3. LERCAN [Concomitant]
     Indication: ESSENTIAL HYPERTENSION
     Route: 048
  4. PNEUMOREL [Concomitant]
     Route: 048
     Dates: end: 20060619
  5. TRIAMTERENE AND HYDROCHLOROTHIAZIDE [Concomitant]
     Indication: ESSENTIAL HYPERTENSION
     Route: 048
     Dates: end: 20060619

REACTIONS (9)
  - BLOOD POTASSIUM INCREASED [None]
  - BLOOD SODIUM DECREASED [None]
  - CEREBROVASCULAR ACCIDENT [None]
  - ELECTROCARDIOGRAM T WAVE PEAKED [None]
  - FACIAL PALSY [None]
  - HYPOGLYCAEMIA [None]
  - MOTOR DYSFUNCTION [None]
  - PARESIS [None]
  - RENAL FAILURE [None]
